FAERS Safety Report 19474520 (Version 1)
Quarter: 2021Q2

REPORT INFORMATION
  Report Type: Report from Study
  Country: US (occurrence: US)
  Receive Date: 20210629
  Receipt Date: 20210629
  Transmission Date: 20210717
  Serious: Yes (Other)
  Sender: FDA-Public Use
  Company Number: US-SHIRE-US201830853

PATIENT
  Sex: Female

DRUGS (1)
  1. HUMAN IMMUNOGLOBULIN; HYALURONIDASE [Suspect]
     Active Substance: HUMAN IMMUNOGLOBULIN G\HYALURONIDASE RECOMBINANT HUMAN
     Indication: PRIMARY IMMUNODEFICIENCY SYNDROME
     Dosage: 50 GRAM, 1X A MONTH
     Route: 058

REACTIONS (6)
  - Product use issue [Unknown]
  - Fatigue [Unknown]
  - Seasonal allergy [Unknown]
  - Fibromyalgia [Unknown]
  - Thyroid cancer [Unknown]
  - Bronchitis [Recovered/Resolved]
